FAERS Safety Report 13881259 (Version 2)
Quarter: 2017Q3

REPORT INFORMATION
  Report Type: Spontaneous
  Country: US (occurrence: US)
  Receive Date: 20170818
  Receipt Date: 20170823
  Transmission Date: 20171127
  Serious: No
  Sender: FDA-Public Use
  Company Number: US-PFIZER INC-2017353312

PATIENT
  Sex: Female

DRUGS (1)
  1. LYRICA [Suspect]
     Active Substance: PREGABALIN
     Indication: NEUROPATHY PERIPHERAL
     Dosage: UNK

REACTIONS (5)
  - Contusion [Unknown]
  - Pain in extremity [Unknown]
  - Erythema [Unknown]
  - Drug dose omission [Unknown]
  - Burning sensation [Unknown]

NARRATIVE: CASE EVENT DATE: 20170813
